FAERS Safety Report 8407458-1 (Version None)
Quarter: 2012Q2

REPORT INFORMATION
  Report Type: 
  Country: None (occurrence: None)
  Receive Date: 20120604
  Receipt Date: 20120525
  Transmission Date: 20120825
  Serious: Yes (Other)
  Sender: FDA-Public Use
  Company Number: US-ASTRAZENECA-2012SE34412

PATIENT
  Age: 25 Year
  Sex: Female

DRUGS (3)
  1. TRAZODONE HCL [Suspect]
     Route: 065
  2. SEROQUEL [Suspect]
     Indication: DEPRESSION
     Route: 048
  3. SEROQUEL [Suspect]
     Indication: SLEEP DISORDER
     Route: 048

REACTIONS (1)
  - CONVERSION DISORDER [None]
